FAERS Safety Report 25538565 (Version 3)
Quarter: 2025Q3

REPORT INFORMATION
  Report Type: Report from Study
  Country: CA (occurrence: CA)
  Receive Date: 20250710
  Receipt Date: 20250901
  Transmission Date: 20251020
  Serious: Yes (Hospitalization, Other)
  Sender: IPSEN BIOPHARMACEUTICALS, INC.
  Company Number: CA-IPSEN Group, Research and Development-2019-23758

PATIENT
  Age: 71 Year
  Sex: Female

DRUGS (8)
  1. LANREOTIDE ACETATE [Suspect]
     Active Substance: LANREOTIDE ACETATE
     Indication: Gastroenteropancreatic neuroendocrine tumour disease
     Dosage: DEEP SC
     Route: 058
     Dates: start: 20191121
  2. ESTROGENS [Concomitant]
     Active Substance: ESTROGENS
     Indication: Bone disorder
  3. VITAMIN 4 [Concomitant]
  4. HERBALS\TURMERIC [Concomitant]
     Active Substance: HERBALS\TURMERIC
  5. ZOPICLONE [Concomitant]
     Active Substance: ZOPICLONE
     Dosage: 6 MG 1 CO HS PRN, ONE TABLET ONCE DAILY AT BEDTIME IF NEEDED
  6. SYNTHROID [Concomitant]
     Active Substance: LEVOTHYROXINE SODIUM
     Route: 048
  7. SYNTHROID [Concomitant]
     Active Substance: LEVOTHYROXINE SODIUM
  8. TWYNSTA [Concomitant]
     Active Substance: AMLODIPINE BESYLATE\TELMISARTAN

REACTIONS (20)
  - Malignant neoplasm progression [Not Recovered/Not Resolved]
  - Rectal haemorrhage [Recovering/Resolving]
  - Haematochezia [Recovering/Resolving]
  - Gallbladder obstruction [Not Recovered/Not Resolved]
  - Disease progression [Not Recovered/Not Resolved]
  - Solar lentigo [Not Recovered/Not Resolved]
  - Hepatic cancer [Unknown]
  - Flatulence [Unknown]
  - Vomiting [Recovered/Resolved]
  - Malaise [Recovered/Resolved]
  - Vomiting [Recovered/Resolved]
  - Malaise [Recovered/Resolved]
  - Wrong technique in product usage process [Unknown]
  - Blood iron decreased [Recovered/Resolved]
  - Vitamin B12 decreased [Unknown]
  - Nausea [Not Recovered/Not Resolved]
  - Dizziness [Not Recovered/Not Resolved]
  - Dysphagia [Not Recovered/Not Resolved]
  - Fatigue [Not Recovered/Not Resolved]
  - Cholelithiasis [Unknown]

NARRATIVE: CASE EVENT DATE: 20191121
